FAERS Safety Report 12362425 (Version 3)
Quarter: 2016Q3

REPORT INFORMATION
  Report Type: Spontaneous
  Country: US (occurrence: US)
  Receive Date: 20160512
  Receipt Date: 20160711
  Transmission Date: 20161109
  Serious: Yes (Other)
  Sender: FDA-Public Use
  Company Number: US-BAYER-2016-088690

PATIENT
  Age: 60 Year
  Sex: Male
  Weight: 137.41 kg

DRUGS (2)
  1. GADAVIST [Suspect]
     Active Substance: GADOBUTROL
     Indication: NUCLEAR MAGNETIC RESONANCE IMAGING SPINAL
     Dosage: 14 ML, ONCE
     Route: 042
     Dates: start: 20160503, end: 20160503
  2. LORAZEPAM. [Concomitant]
     Active Substance: LORAZEPAM
     Indication: PREMEDICATION
     Dosage: UNK
     Dates: start: 20160503

REACTIONS (4)
  - Erythema [Recovered/Resolved]
  - Nausea [Recovered/Resolved]
  - Hot flush [Recovered/Resolved]
  - Paraesthesia ear [Recovered/Resolved]

NARRATIVE: CASE EVENT DATE: 20160503
